FAERS Safety Report 10557769 (Version 2)
Quarter: 2014Q4

REPORT INFORMATION
  Report Type: Spontaneous
  Country: FR (occurrence: FR)
  Receive Date: 20141031
  Receipt Date: 20141111
  Transmission Date: 20150529
  Serious: Yes (Hospitalization)
  Sender: FDA-Public Use
  Company Number: FR-PFIZER INC-2014299438

PATIENT
  Age: 4 Year
  Sex: Female

DRUGS (2)
  1. CHILDRENS ADVIL [Suspect]
     Active Substance: IBUPROFEN
     Indication: EAR INFECTION
     Dosage: 1 DF, 4X/DAY
  2. DOLIPRANE [Concomitant]
     Active Substance: ACETAMINOPHEN
     Indication: EAR INFECTION
     Dosage: 1 DF, 4X/DAY

REACTIONS (1)
  - Mastoiditis [Recovered/Resolved]
